FAERS Safety Report 23865876 (Version 1)
Quarter: 2024Q2

REPORT INFORMATION
  Report Type: Spontaneous
  Country: US (occurrence: US)
  Receive Date: 20240517
  Receipt Date: 20240517
  Transmission Date: 20240715
  Serious: Yes (Other)
  Sender: FDA-Public Use
  Company Number: US-HIKMA PHARMACEUTICALS USA INC.-US-H14001-24-02930

PATIENT

DRUGS (1)
  1. PREDNISONE [Suspect]
     Active Substance: PREDNISONE
     Indication: Eczema
     Dosage: 30MG A DAY WEANING ONE TABLET A WEEK UNTIL I WAS OFF THEM
     Route: 065

REACTIONS (3)
  - Topical steroid withdrawal reaction [Unknown]
  - Drug ineffective [Unknown]
  - Dermatitis [Unknown]
